FAERS Safety Report 25645150 (Version 4)
Quarter: 2025Q3

REPORT INFORMATION
  Report Type: Spontaneous
  Country: US (occurrence: US)
  Receive Date: 20250805
  Receipt Date: 20250902
  Transmission Date: 20251020
  Serious: Yes (Life-Threatening, Hospitalization, Disabling, Other)
  Sender: PFIZER
  Company Number: US-MLMSERVICE-20250725-PI590211-00306-1

PATIENT
  Age: 47 Year
  Sex: Female

DRUGS (6)
  1. THYMOCYTE IMMUNE GLOBULIN NOS [Suspect]
     Active Substance: THYMOCYTE IMMUNE GLOBULIN NOS
     Indication: Immunosuppressant drug therapy
  2. TACROLIMUS [Suspect]
     Active Substance: TACROLIMUS
     Indication: Immunosuppressant drug therapy
  3. MYCOPHENOLATE SODIUM [Suspect]
     Active Substance: MYCOPHENOLATE SODIUM
     Indication: Immunosuppressant drug therapy
  4. PREDNISONE [Suspect]
     Active Substance: PREDNISONE
     Indication: Immunosuppressant drug therapy
  5. SULFAMETHOXAZOLE\TRIMETHOPRIM [Concomitant]
     Active Substance: SULFAMETHOXAZOLE\TRIMETHOPRIM
     Indication: Antifungal prophylaxis
  6. VALGANCICLOVIR [Concomitant]
     Active Substance: VALGANCICLOVIR
     Indication: Antiviral prophylaxis

REACTIONS (12)
  - Prosthetic valve endocarditis [Recovering/Resolving]
  - Endocarditis [Recovering/Resolving]
  - Mycoplasma infection [Recovering/Resolving]
  - Bacterial endophthalmitis [Recovering/Resolving]
  - Blindness [Recovering/Resolving]
  - Cardiac valve abscess [Recovering/Resolving]
  - Septic cerebral embolism [Recovering/Resolving]
  - Visual field defect [Recovering/Resolving]
  - Atrioventricular block complete [Recovering/Resolving]
  - Chorioretinitis [Recovering/Resolving]
  - Retinal haemorrhage [Recovering/Resolving]
  - Impaired healing [Recovering/Resolving]
